FAERS Safety Report 6803694-6 (Version None)
Quarter: 2010Q2

REPORT INFORMATION
  Report Type: 
  Country: None (occurrence: None)
  Receive Date: 20100628
  Receipt Date: 20100526
  Transmission Date: 20101027
  Serious: No
  Sender: FDA-Public Use
  Company Number: US-BAYER-201024038NA

PATIENT
  Age: 75 Year
  Sex: Female
  Weight: 64 kg

DRUGS (6)
  1. ULTRAVIST 300 [Suspect]
     Indication: COMPUTERISED TOMOGRAM ABDOMEN
     Dosage: TOTAL DAILY DOSE: 95 ML  UNIT DOSE: 300 ML
     Route: 042
     Dates: start: 20100526, end: 20100526
  2. FOSAMAX [Concomitant]
  3. PREVACID [Concomitant]
  4. BIAXIN [Concomitant]
  5. AMOXICILLIN [Concomitant]
  6. VOLUVEN [Concomitant]
     Dates: start: 20100526, end: 20100526

REACTIONS (1)
  - RASH ERYTHEMATOUS [None]
